FAERS Safety Report 16093856 (Version 1)
Quarter: 2019Q1

REPORT INFORMATION
  Report Type: Spontaneous
  Country: US (occurrence: US)
  Receive Date: 20190320
  Receipt Date: 20190320
  Transmission Date: 20190418
  Serious: Yes (Other)
  Sender: FDA-Public Use
  Company Number: US-AUROBINDO-AUR-APL-2018-062112

PATIENT
  Sex: Female

DRUGS (1)
  1. LAMOTRIGINE TABLETS 100 MG [Suspect]
     Active Substance: LAMOTRIGINE
     Indication: PRODUCT USED FOR UNKNOWN INDICATION
     Dosage: UNK
     Route: 065

REACTIONS (6)
  - Drug ineffective [Recovered/Resolved]
  - Panic attack [Recovered/Resolved]
  - Disease recurrence [Recovered/Resolved]
  - Product substitution issue [Unknown]
  - Suicidal ideation [Recovered/Resolved]
  - Depression [Recovered/Resolved]
